FAERS Safety Report 21452972 (Version 1)
Quarter: 2022Q4

REPORT INFORMATION
  Report Type: Other
  Country: US (occurrence: None)
  Receive Date: 20221013
  Receipt Date: 20221013
  Transmission Date: 20230113
  Serious: Yes (Death)
  Sender: FDA-Public Use
  Company Number: US-ROCHE-3195200

PATIENT
  Age: 86 Year
  Sex: Male

DRUGS (1)
  1. VABYSMO [Suspect]
     Active Substance: FARICIMAB-SVOA
     Indication: Retinal vein occlusion
     Dosage: ANTICIPATED DATE OF TREATMENT: 14/OCT/2022, LAST INJECTION DATE: 17/MAY/2022
     Route: 065
     Dates: start: 20220309

REACTIONS (1)
  - Death [Fatal]

NARRATIVE: CASE EVENT DATE: 20220809
